FAERS Safety Report 22268299 (Version 1)
Quarter: 2023Q2

REPORT INFORMATION
  Report Type: Spontaneous
  Country: RU (occurrence: None)
  Receive Date: 20230430
  Receipt Date: 20230430
  Transmission Date: 20230721
  Serious: Yes (Other)
  Sender: FDA-Public Use
  Company Number: RU-ROCHE-3338675

PATIENT
  Age: 44 Year
  Sex: Female

DRUGS (10)
  1. TRASTUZUMAB [Suspect]
     Active Substance: TRASTUZUMAB
     Indication: Breast cancer
     Dosage: 18/DEC/2019 TO 06/APR/2020, 6 CYCLES OF CT + TT (DOCETAXEL + TRASTUZUMAB + PERTUZUMAB)
     Route: 042
     Dates: start: 20191218
  2. TRASTUZUMAB [Suspect]
     Active Substance: TRASTUZUMAB
     Route: 042
     Dates: start: 20200427
  3. PERTUZUMAB [Suspect]
     Active Substance: PERTUZUMAB
     Indication: Breast cancer
     Dosage: 18/DEC/2019 TO 06/APR/2020, 6 CYCLES OF CT + TT (DOCETAXEL + TRASTUZUMAB + PERTUZUMAB)
     Route: 042
     Dates: start: 20191208
  4. PERTUZUMAB [Suspect]
     Active Substance: PERTUZUMAB
     Route: 042
     Dates: start: 20200427
  5. ADO-TRASTUZUMAB EMTANSINE [Suspect]
     Active Substance: ADO-TRASTUZUMAB EMTANSINE
     Indication: Breast cancer
     Dosage: (TRASTUZUMAB EMTANSINE 3.6 MG/KG EVERY 21 DAYS, TAMOXIFEN, GOSERELIN).
     Route: 065
     Dates: start: 20210113
  6. DOCETAXEL [Suspect]
     Active Substance: DOCETAXEL
     Indication: Breast cancer
     Dosage: 18/DEC/2019 TO 06/APR/2020, 6 CYCLES OF CT + TT (DOCETAXEL + TRASTUZUMAB + PERTUZUMAB)
     Route: 065
     Dates: start: 20191218
  7. TAMOXIFEN [Suspect]
     Active Substance: TAMOXIFEN
     Indication: Breast cancer
     Route: 065
     Dates: start: 20200427
  8. TAMOXIFEN [Suspect]
     Active Substance: TAMOXIFEN
     Dosage: 13/JAN/2021 ONWARDS, THE PATIENT RECEIVES TARGETED HORMONE THERAPY (TRASTUZUMAB EMTANSINE 3.6 MG/KG
     Route: 065
     Dates: start: 202005, end: 202302
  9. GOSERELIN [Suspect]
     Active Substance: GOSERELIN
     Indication: Breast cancer
     Route: 065
     Dates: start: 20200427
  10. GOSERELIN [Suspect]
     Active Substance: GOSERELIN
     Dosage: 13/JAN/2021 ONWARDS, THE PATIENT RECEIVES TARGETED HORMONE THERAPY (TRASTUZUMAB EMTANSINE 3.6 MG/KG
     Route: 065
     Dates: start: 202005, end: 20220604

REACTIONS (2)
  - Metastases to lung [Unknown]
  - Pyelocaliectasis [Unknown]

NARRATIVE: CASE EVENT DATE: 20201216
